FAERS Safety Report 8001865-7 (Version None)
Quarter: 2011Q4

REPORT INFORMATION
  Report Type: 
  Country: None (occurrence: None)
  Receive Date: 20111222
  Receipt Date: 20111214
  Transmission Date: 20120403
  Serious: Yes (Death, Hospitalization)
  Sender: FDA-Public Use
  Company Number: DE-JNJFOC-20111101852

PATIENT
  Sex: Male

DRUGS (6)
  1. RAMIPRIL [Concomitant]
     Route: 065
  2. OMEPRAZOLE [Concomitant]
     Route: 048
     Dates: start: 20111031, end: 20111102
  3. ABIRATERONE ACETATE [Suspect]
     Indication: PROSTATE CANCER METASTATIC
     Route: 048
     Dates: start: 20111013, end: 20111102
  4. BISOPROLOL FUMARATE [Concomitant]
     Route: 065
  5. PANTOPRAZOLE [Concomitant]
     Route: 065
  6. PREDNISOLONE [Concomitant]
     Route: 048
     Dates: start: 20111013, end: 20111102

REACTIONS (3)
  - ACUTE HEPATIC FAILURE [None]
  - METASTASES TO LIVER [None]
  - CARDIOVASCULAR INSUFFICIENCY [None]
